FAERS Safety Report 10075143 (Version 1)
Quarter: 2014Q2

REPORT INFORMATION
  Report Type: Spontaneous
  Country: US (occurrence: US)
  Receive Date: 20140414
  Receipt Date: 20140414
  Transmission Date: 20141212
  Serious: No
  Sender: FDA-Public Use
  Company Number: US-BIOGENIDEC-2014BI029746

PATIENT
  Age: 60 Year
  Sex: Female

DRUGS (5)
  1. TECFIDERA [Suspect]
     Indication: MULTIPLE SCLEROSIS
     Route: 048
  2. BACLOFEN [Concomitant]
  3. DETROL LA [Concomitant]
  4. FLUOXETINE HCI [Concomitant]
  5. TYLENOL EXTRA STRENGTH [Concomitant]

REACTIONS (1)
  - Asthenia [Not Recovered/Not Resolved]
